FAERS Safety Report 9607341 (Version 1)
Quarter: 2013Q4

REPORT INFORMATION
  Report Type: Spontaneous
  Country: US (occurrence: None)
  Receive Date: 20131007
  Receipt Date: 20131007
  Transmission Date: 20140711
  Serious: Yes (Death, Life-Threatening, Hospitalization, Other)
  Sender: FDA-Public Use
  Company Number: US-MDCO-13-00003

PATIENT
  Age: 79 Year
  Sex: Female
  Weight: 73.94 kg

DRUGS (9)
  1. ANGIOMAX [Suspect]
     Indication: PERCUTANEOUS CORONARY INTERVENTION
     Route: 040
     Dates: start: 20130329, end: 20130329
  2. COENZYME Q10(UBIDECARENONE)(UBIDECARENONE) [Concomitant]
  3. LIPITOR (ATORVASTATIN CALCIUM) [Concomitant]
  4. METOPROLOL(METOPROLOL) [Concomitant]
  5. NEPHRO-VITE (SOLIVITO ASCORBIC ACID, PYRIDOXINE HYDROCHLORIDE, BITOIN, FOLIC ACID, THIAMINE HYDROCHLORIDE, CYANOCOBLAMIN, PANTOTHENIC ACID, RIBOFLAVIN, NICOTINAMIDE) [Concomitant]
  6. PHOSLO(CALCIUM ACETATE)(CALCIUM ACETATE) [Concomitant]
  7. PLAVIX (CLOPIDOGREL BISULFATE)(CLOPIDOGREL BIOSULFATE) [Concomitant]
  8. SEVELAMER(SEVELAMER)(SEVELAMER) [Concomitant]
  9. NITROGLYCERIN(GLYRCERYL TRINITRATE)(GLYCERYL TRINITRATE) [Concomitant]

REACTIONS (6)
  - Haematoma [None]
  - Hypotension [None]
  - Intestinal ischaemia [None]
  - Sepsis [None]
  - Lactic acidosis [None]
  - Vascular pseudoaneurysm [None]
